FAERS Safety Report 7427987-7 (Version None)
Quarter: 2011Q2

REPORT INFORMATION
  Report Type: 
  Country: None (occurrence: None)
  Receive Date: 20110413
  Receipt Date: 20110331
  Transmission Date: 20111010
  Serious: Yes (Other)
  Sender: FDA-Public Use
  Company Number: 2011SP014663

PATIENT
  Age: 67 Year
  Sex: Female

DRUGS (2)
  1. DESLORATADINE [Suspect]
     Indication: THROAT IRRITATION
     Dosage: 5 MG; QD;
     Dates: start: 20110325, end: 20110328
  2. IBUPROFEN [Suspect]
     Indication: THROAT IRRITATION
     Dates: start: 20110325, end: 20110328

REACTIONS (2)
  - HEADACHE [None]
  - SWELLING FACE [None]
